FAERS Safety Report 5383367-X (Version None)
Quarter: 2007Q3

REPORT INFORMATION
  Report Type: 
  Country: None (occurrence: None)
  Receive Date: 20070710
  Receipt Date: 20070628
  Transmission Date: 20080115
  Serious: Yes (Death, Other)
  Sender: FDA-Public Use
  Company Number: IT-PFIZER INC-2007054382

PATIENT
  Sex: Female

DRUGS (3)
  1. TORVAST [Suspect]
  2. CELECOXIB [Interacting]
  3. AULIN [Interacting]

REACTIONS (2)
  - DRUG INTERACTION [None]
  - LIVER DISORDER [None]
